FAERS Safety Report 10481685 (Version 2)
Quarter: 2014Q4

REPORT INFORMATION
  Report Type: Report from Study
  Country: US (occurrence: US)
  Receive Date: 20140929
  Receipt Date: 20141010
  Transmission Date: 20150528
  Serious: Yes (Hospitalization)
  Sender: FDA-Public Use
  Company Number: US-ACTELION-A-US2014-105559

PATIENT
  Age: 45 Year
  Sex: Female

DRUGS (8)
  1. ALBUTEROL. [Concomitant]
     Active Substance: ALBUTEROL
  2. CALCIUM [Concomitant]
     Active Substance: CALCIUM
  3. REMODULIN [Concomitant]
     Active Substance: TREPROSTINIL
  4. MACITENTAN [Suspect]
     Active Substance: MACITENTAN
     Indication: PULMONARY ARTERIAL HYPERTENSION
     Dosage: 10 MG, UNK
     Route: 048
     Dates: start: 20131102
  5. DIGOXIN. [Concomitant]
     Active Substance: DIGOXIN
  6. VITAMIN D [Concomitant]
     Active Substance: CHOLECALCIFEROL
  7. DOCUSATE [Concomitant]
     Active Substance: DOCUSATE
  8. MAGNESIUM [Concomitant]
     Active Substance: MAGNESIUM

REACTIONS (3)
  - Treatment noncompliance [Recovered/Resolved]
  - Device related infection [Recovered/Resolved]
  - Dizziness [Recovered/Resolved]

NARRATIVE: CASE EVENT DATE: 201406
